FAERS Safety Report 16843543 (Version 1)
Quarter: 2019Q3

REPORT INFORMATION
  Report Type: Report from Study
  Country: IE (occurrence: IE)
  Receive Date: 20190924
  Receipt Date: 20190924
  Transmission Date: 20191005
  Serious: Yes (Death)
  Sender: FDA-Public Use
  Company Number: IE-EMD SERONO-9117821

PATIENT
  Age: 16 Year
  Sex: Male

DRUGS (9)
  1. SAIZEN [Suspect]
     Active Substance: SOMATROPIN
     Dosage: OFF THERAPY REASON: UNKNOWN.
     Route: 058
     Dates: start: 20170322
  2. SAIZEN [Suspect]
     Active Substance: SOMATROPIN
     Dosage: SAIZEN 1.3 (UNSPECIFIED UNIT),  OFF THERAPY REASON: INCREASED THERAPY INITIATED
     Route: 058
     Dates: start: 20110622, end: 20111004
  3. SAIZEN [Suspect]
     Active Substance: SOMATROPIN
     Dosage: SAIZEN 20MG LIQUID CARTRIDGE, OFF THERAPY REASON: DECREASED SAIZEN DOSE
     Route: 058
     Dates: start: 20130905, end: 20140226
  4. SAIZEN [Suspect]
     Active Substance: SOMATROPIN
     Dosage: SAIZEN 20MG LIQUID CARTRIDGE, OFF THERAPY REASON: UNKNOWN.
     Route: 058
     Dates: start: 20160114
  5. SAIZEN [Suspect]
     Active Substance: SOMATROPIN
     Dosage: SAIZEN 20MG LIQUID CARTRIDGE, OFF THERAPY REASON: DECREASED SAIZEN DOSE
     Route: 058
     Dates: start: 20140226, end: 20150218
  6. SAIZEN [Suspect]
     Active Substance: SOMATROPIN
     Dosage: CARTRIDGE, OFF THERAPY REASON: INCREASED THERAPY INITIATED
     Route: 058
     Dates: start: 20150218, end: 20160114
  7. SAIZEN [Suspect]
     Active Substance: SOMATROPIN
     Dosage: SAIZEN 20MG LIQUID CARTRIDGE, OFF THERAPY REASON: CLINICAL DECISION
     Route: 058
     Dates: start: 20120326, end: 20130103
  8. SAIZEN [Suspect]
     Active Substance: SOMATROPIN
     Indication: GROWTH HORMONE DEFICIENCY
     Dosage: FREQUENCY- AS PER PRESCRIPTION, SAIZEN 1.0 (UNSPECIFIED UNIT), OFF THERAPY REASON: INCREASED THERAPY
     Route: 058
     Dates: start: 20081120, end: 20110622
  9. SAIZEN [Suspect]
     Active Substance: SOMATROPIN
     Dosage: DOSE FROM SECOND DEVICE LEFT 0446511211014573, SAIZEN 1.5(UNSPECIFIED UNIT), OFF THERAPY REASON: CHA
     Route: 058
     Dates: start: 20111004, end: 20120326

REACTIONS (1)
  - Death [Fatal]

NARRATIVE: CASE EVENT DATE: 201907
